FAERS Safety Report 10120856 (Version 1)
Quarter: 2014Q2

REPORT INFORMATION
  Report Type: Spontaneous
  Country: TR (occurrence: TR)
  Receive Date: 20140425
  Receipt Date: 20140425
  Transmission Date: 20141212
  Serious: Yes (Hospitalization, Other)
  Sender: FDA-Public Use
  Company Number: TR-NOVOPROD-406843

PATIENT
  Age: 14 Year
  Sex: Male
  Weight: 25 kg

DRUGS (2)
  1. NORDITROPIN SIMPLEXX [Suspect]
     Indication: GROWTH HORMONE DEFICIENCY
     Dosage: UNK
     Route: 065
  2. NORDITROPIN SIMPLEXX [Suspect]
     Dosage: UNK
     Route: 065

REACTIONS (4)
  - Chest pain [Recovered/Resolved]
  - Cardiac disorder [Recovered/Resolved]
  - Electrocardiogram abnormal [Unknown]
  - Troponin increased [Recovered/Resolved]
